FAERS Safety Report 17133427 (Version 1)
Quarter: 2019Q4

REPORT INFORMATION
  Report Type: Spontaneous
  Country: US (occurrence: US)
  Receive Date: 20191118
  Receipt Date: 20191118
  Transmission Date: 20200122
  Serious: Yes (Hospitalization)
  Sender: FDA-Public Use
  Company Number: None

PATIENT
  Sex: Male

DRUGS (14)
  1. SILDENAFIL. [Concomitant]
     Active Substance: SILDENAFIL
  2. MAGNESIUM-OX [Concomitant]
  3. METFORMIN [Concomitant]
     Active Substance: METFORMIN HYDROCHLORIDE
  4. FUROSEMIDE. [Concomitant]
     Active Substance: FUROSEMIDE
  5. AMBRISENTAN [Concomitant]
     Active Substance: AMBRISENTAN
  6. POT CHLORIDE [Concomitant]
     Active Substance: POTASSIUM CHLORIDE
  7. VENTOLIN HFS [Concomitant]
  8. HYDROCHLOROTHIAZIDE. [Concomitant]
     Active Substance: HYDROCHLOROTHIAZIDE
  9. TADALAFIL 20MG [Suspect]
     Active Substance: TADALAFIL
     Indication: PULMONARY ARTERIAL HYPERTENSION
     Route: 048
     Dates: start: 20190926
  10. OMPERAZOLE [Concomitant]
     Active Substance: OMEPRAZOLE
  11. NOVOLOG [Concomitant]
     Active Substance: INSULIN ASPART
  12. GABAPENTIN. [Concomitant]
     Active Substance: GABAPENTIN
  13. CARVEDILOL. [Concomitant]
     Active Substance: CARVEDILOL
  14. LOVASTATIN. [Concomitant]
     Active Substance: LOVASTATIN

REACTIONS (3)
  - Muscular weakness [None]
  - Peripheral swelling [None]
  - Cardiac disorder [None]
